FAERS Safety Report 16697827 (Version 3)
Quarter: 2019Q3

REPORT INFORMATION
  Report Type: Spontaneous
  Country: BE (occurrence: BE)
  Receive Date: 20190813
  Receipt Date: 20190913
  Transmission Date: 20191004
  Serious: Yes (Life-Threatening)
  Sender: FDA-Public Use
  Company Number: BE-PFIZER INC-2019344428

PATIENT
  Sex: Female
  Weight: 93 kg

DRUGS (1)
  1. CELEBREX [Suspect]
     Active Substance: CELECOXIB
     Indication: RHEUMATOID ARTHRITIS
     Dosage: 200 MG, 1X/DAY
     Route: 048

REACTIONS (8)
  - Cough [Recovering/Resolving]
  - Dry mouth [Recovering/Resolving]
  - Dry eye [Recovering/Resolving]
  - Tinnitus [Recovering/Resolving]
  - Fatigue [Recovering/Resolving]
  - Oxygen saturation decreased [Recovering/Resolving]
  - Weight decreased [Recovering/Resolving]
  - Memory impairment [Recovering/Resolving]

NARRATIVE: CASE EVENT DATE: 2015
